FAERS Safety Report 12606753 (Version 1)
Quarter: 2016Q3

REPORT INFORMATION
  Report Type: Spontaneous
  Country: JP (occurrence: JP)
  Receive Date: 20160729
  Receipt Date: 20160729
  Transmission Date: 20161109
  Serious: Yes (Hospitalization)
  Sender: FDA-Public Use
  Company Number: JP-009507513-1605JPN007251

PATIENT
  Age: 76 Year
  Sex: Female
  Weight: 62 kg

DRUGS (14)
  1. FERROMIA [Concomitant]
     Active Substance: FERROUS CITRATE
     Indication: IRON DEFICIENCY ANAEMIA
     Dosage: 1 DF, QD
     Route: 048
  2. HERBAL NOS [Concomitant]
     Active Substance: HERBALS
     Dosage: 3 DF, QD, BETWEEN MEALS. DIVIDED DOSE FREQUENCY UNKNOWN
     Route: 048
  3. TOVIAZ [Concomitant]
     Active Substance: FESOTERODINE FUMARATE
     Dosage: 1 DF, QD
     Route: 048
  4. COPEGUS [Concomitant]
     Active Substance: RIBAVIRIN
     Dosage: 1 TABLET IN THE MORNING AND 2 TABLETS IN THE EVENING
     Route: 048
     Dates: start: 20150803, end: 20150807
  5. SOVALDI [Suspect]
     Active Substance: SOFOSBUVIR
     Dosage: 1 DF, QD
     Route: 048
     Dates: start: 20150803
  6. EPADEL [Concomitant]
     Active Substance: ICOSAPENT
     Dosage: 3 DF, QD, AFTER MEALS. DIVIDED DOSE FREQUENCY UNKNOWN
     Route: 048
  7. OLMETEC [Concomitant]
     Active Substance: OLMESARTAN MEDOXOMIL
     Dosage: 1 DF, QD
     Route: 048
  8. HACHIMI-JIO-GAN [Concomitant]
     Dosage: 3 DF, QD, BETWEEN MEALS. DIVIDED DOSE FREQUENCY UNKNOWN
     Route: 048
  9. THYRADIN [Concomitant]
     Active Substance: LEVOTHYROXINE
     Dosage: 1 DF, QD
     Route: 048
  10. DICLOD [Concomitant]
     Active Substance: DICLOFENAC SODIUM
     Dosage: DOSE UNKNOWN, FORMULATION: EED
     Route: 047
  11. COVERSYL (PERINDOPRIL ERBUMINE) [Concomitant]
     Active Substance: PERINDOPRIL ERBUMINE
     Dosage: 1 DF, QD
     Route: 048
  12. REBETOL [Suspect]
     Active Substance: RIBAVIRIN
     Dosage: 2 DF, QD
     Route: 048
     Dates: start: 20150807
  13. NOFLO [Concomitant]
     Dosage: DOSE UNKNOWN, FORMULATION: EED
     Route: 047
  14. EQUA [Concomitant]
     Active Substance: VILDAGLIPTIN
     Dosage: 2 DF, QD, DIVIDED DOSE FREQUENCY UNKNOWN
     Route: 048

REACTIONS (1)
  - Iron deficiency anaemia [Recovering/Resolving]

NARRATIVE: CASE EVENT DATE: 201508
